FAERS Safety Report 5379276-2 (Version None)
Quarter: 2007Q3

REPORT INFORMATION
  Report Type: 
  Country: None (occurrence: None)
  Receive Date: 20070705
  Receipt Date: 20070626
  Transmission Date: 20080115
  Serious: Yes (Other)
  Sender: FDA-Public Use
  Company Number: DE-PFIZER INC-2007048700

PATIENT
  Sex: Female
  Weight: 61 kg

DRUGS (1)
  1. XALATAN [Suspect]
     Indication: GLAUCOMA
     Route: 047
     Dates: start: 20061019, end: 20070521

REACTIONS (6)
  - ARRHYTHMIA [None]
  - BLOOD PRESSURE INCREASED [None]
  - BLOOD PRESSURE ORTHOSTATIC ABNORMAL [None]
  - CARDIOVASCULAR DISORDER [None]
  - EXTRASYSTOLES [None]
  - PALPITATIONS [None]
